FAERS Safety Report 6067734-7 (Version None)
Quarter: 2009Q1

REPORT INFORMATION
  Report Type: 
  Country: None (occurrence: None)
  Receive Date: 20090205
  Receipt Date: 20090130
  Transmission Date: 20090719
  Serious: Yes (Hospitalization)
  Sender: FDA-Public Use
  Company Number: US-GILEAD-2009-0020095

PATIENT
  Sex: Male
  Weight: 124.85 kg

DRUGS (15)
  1. LETAIRIS [Suspect]
     Indication: PULMONARY ARTERIAL HYPERTENSION
     Route: 048
     Dates: start: 20080605
  2. REVATIO [Concomitant]
  3. LASIX [Concomitant]
  4. ALTACE [Concomitant]
  5. COREG [Concomitant]
  6. CARDIZEM [Concomitant]
  7. CARDURA [Concomitant]
  8. LANTUS [Concomitant]
  9. GLYBURIDE [Concomitant]
  10. NEXIUM [Concomitant]
  11. LEXAPRO [Concomitant]
  12. WELLBUTRIN [Concomitant]
  13. POTASSIUM CHLORIDE [Concomitant]
  14. GEMFIBROZIL [Concomitant]
  15. ASPIRIN [Concomitant]

REACTIONS (1)
  - CARDIAC FAILURE CONGESTIVE [None]
